FAERS Safety Report 9782343 (Version 2)
Quarter: 2013Q4

REPORT INFORMATION
  Report Type: Report from Study
  Country: FR (occurrence: FR)
  Receive Date: 20131226
  Receipt Date: 20131226
  Transmission Date: 20140711
  Serious: No
  Sender: FDA-Public Use
  Company Number: FR-UCBSA-105499

PATIENT
  Age: 41 Year
  Sex: Female
  Weight: 57 kg

DRUGS (5)
  1. CIMZIA [Suspect]
     Indication: RHEUMATOID ARTHRITIS
     Route: 058
     Dates: start: 20121114
  2. METHOTREXATE [Concomitant]
     Indication: RHEUMATOID ARTHRITIS
     Route: 048
     Dates: start: 2001
  3. CORTANCYL [Concomitant]
     Indication: RHEUMATOID ARTHRITIS
     Route: 048
     Dates: start: 20130413, end: 20130505
  4. SPECIAFOLDINE [Concomitant]
     Indication: ADVERSE DRUG REACTION
     Route: 048
     Dates: start: 2002
  5. UVEDOSE [Concomitant]
     Indication: OSTEOPOROSIS
     Dosage: 1 PHIAL, ONCE EVERY2 MONTHS
     Route: 048
     Dates: start: 2002

REACTIONS (1)
  - Vaginal infection [Unknown]
